FAERS Safety Report 5400480-9 (Version None)
Quarter: 2007Q3

REPORT INFORMATION
  Report Type: 
  Country: None (occurrence: None)
  Receive Date: 20070730
  Receipt Date: 20070724
  Transmission Date: 20080115
  Serious: Yes (Death)
  Sender: FDA-Public Use
  Company Number: JP-ASTRAZENECA-2007AP04423

PATIENT
  Age: 80 Year
  Sex: Female

DRUGS (11)
  1. CRESTOR [Suspect]
     Indication: HYPERCHOLESTEROLAEMIA
     Route: 048
     Dates: start: 20070205
  2. SUNRYTHM [Concomitant]
     Route: 048
  3. BERIZYM [Concomitant]
     Route: 048
  4. ASPIRIN [Concomitant]
  5. MOBIC [Concomitant]
  6. BIOFERMIN [Concomitant]
  7. SELSPOT [Concomitant]
  8. JU-KAMA [Concomitant]
  9. PRAVASTATIN [Concomitant]
  10. NITOROL [Concomitant]
     Dosage: DRUG TAKEN SEVERAL TIMES A YEAR
  11. DILTIAZEM HCL [Concomitant]

REACTIONS (1)
  - MYOCARDIAL INFARCTION [None]
